FAERS Safety Report 21966527 (Version 1)
Quarter: 2023Q1

REPORT INFORMATION
  Report Type: Spontaneous
  Country: BR (occurrence: BR)
  Receive Date: 20230208
  Receipt Date: 20230208
  Transmission Date: 20230418
  Serious: Yes (Hospitalization)
  Sender: FDA-Public Use
  Company Number: BR-MYLANLABS-2023M1012225

PATIENT
  Sex: Female
  Weight: 47 kg

DRUGS (1)
  1. XALATAN [Suspect]
     Active Substance: LATANOPROST
     Indication: Glaucoma
     Dosage: 1 GTT DROPS, PM
     Route: 047
     Dates: start: 2000, end: 202212

REACTIONS (7)
  - Hospitalisation [Recovered/Resolved]
  - Hypersensitivity [Recovering/Resolving]
  - Dyspnoea [Recovered/Resolved]
  - Food intolerance [Recovering/Resolving]
  - Osteopenia [Not Recovered/Not Resolved]
  - Osteoporosis [Unknown]
  - Quality of life decreased [Unknown]

NARRATIVE: CASE EVENT DATE: 20100101
